FAERS Safety Report 23772918 (Version 2)
Quarter: 2024Q2

REPORT INFORMATION
  Report Type: Spontaneous
  Country: RO (occurrence: RO)
  Receive Date: 20240423
  Receipt Date: 20240528
  Transmission Date: 20240715
  Serious: Yes (Other)
  Sender: FDA-Public Use
  Company Number: RO-009507513-2404ROU009673

PATIENT
  Sex: Female

DRUGS (1)
  1. PEMBROLIZUMAB [Suspect]
     Active Substance: PEMBROLIZUMAB
     Indication: Triple negative breast cancer
     Dosage: UNK

REACTIONS (3)
  - Hepatotoxicity [Not Recovered/Not Resolved]
  - Hepatitis A [Unknown]
  - Surgery [Unknown]

NARRATIVE: CASE EVENT DATE: 20240101
